FAERS Safety Report 21409490 (Version 9)
Quarter: 2023Q2

REPORT INFORMATION
  Report Type: Report from Study
  Country: CN (occurrence: CN)
  Receive Date: 20221004
  Receipt Date: 20230523
  Transmission Date: 20230721
  Serious: Yes (Other)
  Sender: FDA-Public Use
  Company Number: CN-TAKEDA-2022TUS069193

PATIENT
  Age: 47 Year
  Sex: Female
  Weight: 65 kg

DRUGS (58)
  1. IXAZOMIB [Suspect]
     Active Substance: IXAZOMIB
     Indication: Plasma cell myeloma
     Dosage: 4 MILLIGRAM, 1/WEEK
     Route: 048
     Dates: start: 20220403
  2. DEXAMETHASONE SODIUM PHOSPHATE [Suspect]
     Active Substance: DEXAMETHASONE SODIUM PHOSPHATE
     Indication: Plasma cell myeloma
     Dosage: 20 MILLIGRAM
     Route: 042
     Dates: start: 20220403, end: 20220403
  3. DEXAMETHASONE SODIUM PHOSPHATE [Suspect]
     Active Substance: DEXAMETHASONE SODIUM PHOSPHATE
     Dosage: 20 MILLIGRAM
     Route: 042
     Dates: start: 20220429, end: 20220429
  4. DEXAMETHASONE SODIUM PHOSPHATE [Suspect]
     Active Substance: DEXAMETHASONE SODIUM PHOSPHATE
     Dosage: 20 MILLIGRAM
     Route: 042
     Dates: start: 20220506, end: 20220506
  5. POMALIDOMIDE [Suspect]
     Active Substance: POMALIDOMIDE
     Indication: Plasma cell myeloma
     Dosage: UNK
     Route: 048
     Dates: start: 20220430, end: 20220430
  6. EUCALYPTOL, LIMONENE AND PINENE [Concomitant]
     Indication: Productive cough
     Dosage: UNK, TID
     Route: 048
     Dates: start: 20220402, end: 20220502
  7. CEFOPERAZONE\TAZOBACTAM SODIUM [Concomitant]
     Active Substance: CEFOPERAZONE\TAZOBACTAM SODIUM
     Indication: Infection prophylaxis
     Dosage: 2.25 GRAM
     Route: 042
     Dates: start: 20220404, end: 20220413
  8. CEFOPERAZONE\TAZOBACTAM SODIUM [Concomitant]
     Active Substance: CEFOPERAZONE\TAZOBACTAM SODIUM
     Dosage: 2.25 GRAM, QD
     Route: 042
     Dates: start: 20220428, end: 20220428
  9. CEFOPERAZONE\TAZOBACTAM SODIUM [Concomitant]
     Active Substance: CEFOPERAZONE\TAZOBACTAM SODIUM
     Dosage: 2.25 GRAM, QD
     Route: 042
     Dates: start: 20220505, end: 20220505
  10. PENTOXYVERINE [Concomitant]
     Active Substance: PENTOXYVERINE
     Indication: Antitussive therapy
     Dosage: UNK UNK, TID
     Route: 048
     Dates: start: 20220406, end: 20220502
  11. COENZYME Q10 [Concomitant]
     Active Substance: DIETARY SUPPLEMENT\UBIDECARENONE
     Indication: Adjuvant therapy
     Dosage: UNK UNK, TID
     Route: 048
     Dates: start: 20220407, end: 20220520
  12. DEXAMETHASONE ACETATE [Concomitant]
     Active Substance: DEXAMETHASONE ACETATE
     Indication: Plasma cell myeloma
     Dosage: 20 MILLIGRAM, 1/WEEK
     Route: 048
     Dates: start: 20220417, end: 20220417
  13. DEXAMETHASONE ACETATE [Concomitant]
     Active Substance: DEXAMETHASONE ACETATE
     Dosage: 20 MILLIGRAM, 1/WEEK
     Route: 048
     Dates: start: 20220507, end: 20220507
  14. RABEPRAZOLE SODIUM [Concomitant]
     Active Substance: RABEPRAZOLE SODIUM
     Indication: Prophylaxis
     Dosage: UNK UNK, QD
     Route: 048
     Dates: start: 20220413, end: 20220420
  15. RABEPRAZOLE SODIUM [Concomitant]
     Active Substance: RABEPRAZOLE SODIUM
     Dosage: UNK UNK, QD
     Route: 048
     Dates: start: 20220507, end: 20220507
  16. MONTMORILLONITE [Concomitant]
     Active Substance: MONTMORILLONITE
     Indication: Antidiarrhoeal supportive care
     Dosage: UNK
     Route: 048
     Dates: start: 20220426, end: 20220426
  17. METHYLCOBALAMIN [Concomitant]
     Active Substance: METHYLCOBALAMIN
     Indication: Anaemia
     Dosage: UNK UNK, TID
     Route: 048
     Dates: start: 20220426, end: 20220502
  18. METHYLCOBALAMIN [Concomitant]
     Active Substance: METHYLCOBALAMIN
     Dosage: UNK
     Route: 048
     Dates: start: 20221010
  19. POTASSIUM CHLORIDE [Concomitant]
     Active Substance: POTASSIUM CHLORIDE
     Indication: Electrolyte imbalance
     Dosage: 30 MILLILITER, QOD
     Route: 048
     Dates: end: 20220502
  20. POTASSIUM CHLORIDE [Concomitant]
     Active Substance: POTASSIUM CHLORIDE
     Indication: Acid base balance
     Dosage: 20 MILLILITER, QOD
     Route: 048
     Dates: start: 20220506, end: 20220506
  21. POTASSIUM CHLORIDE [Concomitant]
     Active Substance: POTASSIUM CHLORIDE
     Dosage: 15 MILLILITER, QOD
     Route: 048
     Dates: start: 20220508, end: 20220508
  22. SODIUM BICARBONATE [Concomitant]
     Active Substance: SODIUM BICARBONATE
     Indication: Electrolyte imbalance
     Dosage: UNK UNK, TID
     Route: 048
     Dates: start: 20220426, end: 20220502
  23. SODIUM BICARBONATE [Concomitant]
     Active Substance: SODIUM BICARBONATE
     Indication: Prophylaxis
     Dosage: 250 MILLILITER
     Route: 050
     Dates: start: 20220506, end: 20220507
  24. DEFERASIROX [Concomitant]
     Active Substance: DEFERASIROX
     Indication: Anaemia
     Dosage: UNK UNK, BID
     Route: 048
     Dates: start: 20220427, end: 20220502
  25. BETAHISTINE [Concomitant]
     Active Substance: BETAHISTINE
     Indication: Vertigo
     Dosage: UNK UNK, BID
     Route: 048
     Dates: start: 20220427, end: 20220502
  26. BETAHISTINE [Concomitant]
     Active Substance: BETAHISTINE
     Indication: Dizziness
     Dosage: UNK, TID
     Route: 048
     Dates: start: 20220621, end: 20220627
  27. ZOLEDRONIC ACID [Concomitant]
     Active Substance: ZOLEDRONIC ACID
     Indication: Prophylaxis
     Dosage: 4 MILLIGRAM, QD
     Route: 042
     Dates: start: 20220427, end: 20220427
  28. HYDROTALCITE [Concomitant]
     Active Substance: HYDROTALCITE
     Indication: Antacid therapy
     Dosage: UNK UNK, QD
     Route: 048
     Dates: start: 20220428, end: 20220428
  29. HYDROTALCITE [Concomitant]
     Active Substance: HYDROTALCITE
     Dosage: UNK UNK, QD
     Route: 048
     Dates: start: 20220505, end: 20220506
  30. LOXOPROFEN SODIUM [Concomitant]
     Active Substance: LOXOPROFEN SODIUM
     Indication: Prophylaxis
     Dosage: UNK UNK, QD
     Route: 048
     Dates: start: 20220428, end: 20220428
  31. LOXOPROFEN SODIUM [Concomitant]
     Active Substance: LOXOPROFEN SODIUM
     Dosage: UNK UNK, QD
     Route: 048
     Dates: start: 20220505, end: 20220509
  32. PANTOPRAZOLE SODIUM [Concomitant]
     Active Substance: PANTOPRAZOLE SODIUM
     Indication: Prophylaxis
     Dosage: 40 MILLIGRAM
     Route: 042
     Dates: start: 20220403, end: 20220403
  33. PANTOPRAZOLE SODIUM [Concomitant]
     Active Substance: PANTOPRAZOLE SODIUM
     Dosage: 40 MILLIGRAM, QD
     Route: 042
     Dates: start: 20220429, end: 20220429
  34. PANTOPRAZOLE SODIUM [Concomitant]
     Active Substance: PANTOPRAZOLE SODIUM
     Dosage: 40 MILLIGRAM
     Route: 042
     Dates: start: 20220506, end: 20220506
  35. UBENIMEX [Concomitant]
     Active Substance: UBENIMEX
     Indication: Adjuvant therapy
     Dosage: UNK UNK, TID
     Route: 048
     Dates: start: 20220430, end: 20220430
  36. UBENIMEX [Concomitant]
     Active Substance: UBENIMEX
     Indication: Plasma cell myeloma
     Dosage: UNK UNK, TID
     Route: 048
     Dates: start: 20220412, end: 20220416
  37. CALCIUM CARBONATE\CHOLECALCIFEROL [Concomitant]
     Active Substance: CALCIUM CARBONATE\CHOLECALCIFEROL
     Indication: Osteoporosis prophylaxis
     Dosage: UNK UNK, QD
     Route: 048
     Dates: start: 20220430, end: 20220530
  38. LORATADINE [Concomitant]
     Active Substance: LORATADINE
     Indication: Allergy prophylaxis
     Dosage: UNK UNK, QD
     Route: 048
     Dates: start: 20220505, end: 20220507
  39. MAGNESIUM ISOGLYCYRRHIZINATE [Concomitant]
     Active Substance: MAGNESIUM ISOGLYCYRRHIZINATE
     Indication: Liver injury
     Dosage: 200 MILLIGRAM, QD
     Route: 042
     Dates: start: 20220506, end: 20220513
  40. ADEMETIONINE [Concomitant]
     Active Substance: ADEMETIONINE
     Indication: Liver disorder
     Dosage: 1 GRAM, QD
     Route: 042
     Dates: start: 20220506, end: 20220512
  41. ADEMETIONINE [Concomitant]
     Active Substance: ADEMETIONINE
     Indication: Acquired immunodeficiency syndrome
  42. COMPOUND ALUMINIUM HYDROXIDE [Concomitant]
     Indication: Prophylaxis
     Dosage: UNK
     Route: 048
     Dates: start: 20220506, end: 20220507
  43. COMPOUND ALUMINIUM HYDROXIDE [Concomitant]
     Dosage: UNK UNK, BID
     Route: 048
     Dates: start: 20220508, end: 20220508
  44. CALCIUM CHLORIDE\POTASSIUM CHLORIDE\SODIUM CHLORIDE [Concomitant]
     Active Substance: CALCIUM CHLORIDE\POTASSIUM CHLORIDE\SODIUM CHLORIDE
     Indication: Prophylaxis
     Dosage: 500 MILLILITER
     Route: 050
     Dates: start: 20220506, end: 20220507
  45. CALCIUM CHLORIDE\POTASSIUM CHLORIDE\SODIUM CHLORIDE [Concomitant]
     Active Substance: CALCIUM CHLORIDE\POTASSIUM CHLORIDE\SODIUM CHLORIDE
     Dosage: 500 MILLILITER, TID
     Route: 048
     Dates: start: 20220506, end: 20220507
  46. CARBOHYDRATES\FATTY ACIDS\MINERALS\PROTEIN\VITAMINS [Concomitant]
     Active Substance: CARBOHYDRATES\FATTY ACIDS\MINERALS\PROTEIN\VITAMINS
     Indication: Nutritional supplementation
     Dosage: 20 GRAM, TID
     Route: 048
     Dates: start: 20220507, end: 20220507
  47. SODIUM THIOSULFATE [Concomitant]
     Active Substance: SODIUM THIOSULFATE
     Indication: Rash
     Dosage: 0.64 GRAM
     Route: 042
     Dates: start: 20220507, end: 20220507
  48. MOMETASONE FUROATE [Concomitant]
     Active Substance: MOMETASONE FUROATE
     Indication: Rash
     Dosage: 0.1 GRAM
     Route: 050
     Dates: start: 20220507, end: 20220507
  49. MOMETASONE FUROATE [Concomitant]
     Active Substance: MOMETASONE FUROATE
     Dosage: 0.1 GRAM
     Route: 050
     Dates: start: 20220508, end: 20220508
  50. DEXAMETHASONE SODIUM PHOSPHATE [Concomitant]
     Active Substance: DEXAMETHASONE SODIUM PHOSPHATE
     Indication: Plasma cell myeloma
     Dosage: 20 MILLIGRAM, QD
     Route: 042
     Dates: start: 20220429, end: 20220429
  51. DEXAMETHASONE SODIUM PHOSPHATE [Concomitant]
     Active Substance: DEXAMETHASONE SODIUM PHOSPHATE
     Dosage: 20 MILLIGRAM
     Route: 042
     Dates: start: 20220506, end: 20220506
  52. TRAMADOL HYDROCHLORIDE [Concomitant]
     Active Substance: TRAMADOL HYDROCHLORIDE
     Indication: Analgesic therapy
     Dosage: 0.1 GRAM
     Route: 058
     Dates: start: 20220508, end: 20220508
  53. VORICONAZOLE [Concomitant]
     Active Substance: VORICONAZOLE
     Indication: Infection
     Dosage: UNK UNK, BID
     Route: 048
     Dates: start: 20220412, end: 20220416
  54. METHOXYPHENAMINE HYDROCHLORIDE [Concomitant]
     Active Substance: METHOXYPHENAMINE HYDROCHLORIDE
     Indication: Productive cough
     Dosage: UNK UNK, TID
     Route: 048
     Dates: start: 20220401, end: 20220401
  55. IPRATROPIUM BROMIDE [Concomitant]
     Active Substance: IPRATROPIUM BROMIDE\IPRATROPIUM BROMIDE ANHYDROUS
     Indication: Asthma prophylaxis
     Dosage: UNK
     Route: 055
     Dates: start: 20220402, end: 20220402
  56. BUDESONIDE [Concomitant]
     Active Substance: BUDESONIDE
     Indication: Antiinflammatory therapy
     Dosage: UNK
     Route: 055
     Dates: start: 20220402, end: 20220402
  57. BUDESONIDE [Concomitant]
     Active Substance: BUDESONIDE
     Indication: Asthma
  58. NOREPINEPHRINE BITARTRATE [Concomitant]
     Active Substance: NOREPINEPHRINE BITARTRATE
     Indication: Haemostasis
     Dosage: 2 MILLIGRAM
     Route: 065
     Dates: start: 20220402, end: 20220402

REACTIONS (12)
  - Cholecystitis chronic [Not Recovered/Not Resolved]
  - Alopecia [Not Recovered/Not Resolved]
  - Dizziness [Recovering/Resolving]
  - Blood potassium decreased [Recovering/Resolving]
  - Diarrhoea [Recovering/Resolving]
  - Blood calcium decreased [Recovering/Resolving]
  - Urinary occult blood positive [Not Recovered/Not Resolved]
  - Eye inflammation [Recovering/Resolving]
  - Haemoglobin decreased [Recovering/Resolving]
  - Hypoaesthesia [Not Recovered/Not Resolved]
  - Pyrexia [Not Recovered/Not Resolved]
  - Off label use [Unknown]

NARRATIVE: CASE EVENT DATE: 20220501
